FAERS Safety Report 9917017 (Version 1)
Quarter: 2014Q1

REPORT INFORMATION
  Report Type: Spontaneous
  Country: US (occurrence: US)
  Receive Date: 20140221
  Receipt Date: 20140221
  Transmission Date: 20141002
  Serious: Yes (Hospitalization)
  Sender: FDA-Public Use
  Company Number: US-GLAXOSMITHKLINE-A1060831A

PATIENT
  Age: 15 Year
  Sex: Female

DRUGS (3)
  1. LAMICTAL [Suspect]
     Indication: CONVULSION
     Dosage: 25MG TWICE PER DAY
     Route: 048
     Dates: start: 20140117, end: 20140208
  2. CITALOPRAM [Concomitant]
  3. CONCERTA [Concomitant]

REACTIONS (14)
  - Suicidal ideation [Unknown]
  - Rash generalised [Not Recovered/Not Resolved]
  - Renal function test abnormal [Unknown]
  - Hepatic enzyme increased [Unknown]
  - Weight decreased [Unknown]
  - Epistaxis [Unknown]
  - Haemoptysis [Unknown]
  - Ocular icterus [Unknown]
  - Nodule [Unknown]
  - Protein urine present [Unknown]
  - Pyrexia [Unknown]
  - Haematemesis [Unknown]
  - Malaise [Unknown]
  - Mental disorder [Unknown]
